FAERS Safety Report 22061407 (Version 1)
Quarter: 2023Q1

REPORT INFORMATION
  Report Type: Spontaneous
  Country: DE (occurrence: DE)
  Receive Date: 20230304
  Receipt Date: 20230304
  Transmission Date: 20230417
  Serious: Yes (Hospitalization)
  Sender: FDA-Public Use
  Company Number: DE-ADRED-07872-01

PATIENT
  Age: 65 Year
  Sex: Female
  Weight: 54 kg

DRUGS (11)
  1. VENETOCLAX [Suspect]
     Active Substance: VENETOCLAX
     Indication: Product used for unknown indication
     Dosage: SCHEMA
     Route: 048
  2. PANTOPRAZOLE SODIUM [Concomitant]
     Active Substance: PANTOPRAZOLE SODIUM
     Indication: Product used for unknown indication
     Dosage: 40 MG, 1-0-0-0
  3. Fols?ure [Concomitant]
     Indication: Product used for unknown indication
     Dosage: 5 MG, 1-0-0-0
  4. DECITABINE [Suspect]
     Active Substance: DECITABINE
     Indication: Product used for unknown indication
     Dosage: SCHEMA
     Route: 065
  5. METOPROLOL [Concomitant]
     Active Substance: METOPROLOL
     Indication: Product used for unknown indication
     Dosage: 100 MG, 0-0-1-0
  6. POTASSIUM IODIDE [Concomitant]
     Active Substance: POTASSIUM IODIDE
     Indication: Product used for unknown indication
     Dosage: 100 ?G, 0-0-1-0
  7. Ferro sanol duodenal 100mg [Concomitant]
     Indication: Product used for unknown indication
     Dosage: 100 MG, 1-0-0-0
  8. Calciumcarbonat/Colecalciferol (Vitamin D) [Concomitant]
     Indication: Product used for unknown indication
     Dosage: 500|300 MG, 1-0-0-0
  9. SPIRONOLACTONE [Concomitant]
     Active Substance: SPIRONOLACTONE
     Indication: Product used for unknown indication
     Dosage: 50 MG, 1-0-0-0
  10. MACROGOL P [Concomitant]
     Indication: Product used for unknown indication
     Dosage: 1-0-0-0
  11. ALLOPURINOL [Concomitant]
     Active Substance: ALLOPURINOL
     Indication: Product used for unknown indication
     Dosage: 100 MG, 1-0-0-0

REACTIONS (9)
  - Musculoskeletal pain [Unknown]
  - Pancytopenia [Unknown]
  - Anaemia [Unknown]
  - Condition aggravated [Unknown]
  - Systemic infection [Unknown]
  - General physical health deterioration [Unknown]
  - Pyrexia [Unknown]
  - Hyponatraemia [Unknown]
  - Fasciitis [Unknown]
